FAERS Safety Report 10200711 (Version 1)
Quarter: 2014Q2

REPORT INFORMATION
  Report Type: Other
  Country: GR (occurrence: GR)
  Receive Date: 20140528
  Receipt Date: 20140528
  Transmission Date: 20141212
  Serious: Yes (Other)
  Sender: FDA-Public Use
  Company Number: GR-BRISTOL-MYERS SQUIBB COMPANY-20849402

PATIENT
  Sex: 0

DRUGS (3)
  1. CETUXIMAB [Suspect]
     Indication: COLORECTAL CANCER
  2. OXALIPLATIN [Suspect]
     Indication: COLORECTAL CANCER
  3. CAPECITABINE [Suspect]
     Indication: COLORECTAL CANCER
     Dosage: DAY 1-7.CYCLE 12

REACTIONS (7)
  - Disease progression [Unknown]
  - Neurotoxicity [Unknown]
  - Gastrointestinal toxicity [Unknown]
  - Anaemia [Unknown]
  - Thrombocytopenia [Unknown]
  - Rash [Unknown]
  - Diarrhoea [Unknown]
